FAERS Safety Report 8785776 (Version 1)
Quarter: 2012Q4

REPORT INFORMATION
  Report Type: 
  Country: US (occurrence: US)
  Receive Date: 20120914
  Receipt Date: 20120914
  Transmission Date: 20130627
  Serious: Yes (Other)
  Sender: FDA-Public Use
  Company Number: US-GLAXOSMITHKLINE-B0697683A

PATIENT
  Age: 50 Year
  Sex: Male

DRUGS (2)
  1. AVANDIA [Suspect]
     Indication: DIABETES MELLITUS
     Dosage: 4MG Per day
     Route: 048
     Dates: start: 20060213, end: 20100205
  2. AVANDAMET [Suspect]
     Indication: DIABETES MELLITUS
     Route: 048
     Dates: start: 20070517, end: 20090208

REACTIONS (2)
  - Cardiac failure congestive [Not Recovered/Not Resolved]
  - Cerebrovascular accident [Unknown]
